FAERS Safety Report 24725328 (Version 2)
Quarter: 2024Q4

REPORT INFORMATION
  Report Type: Spontaneous
  Country: US (occurrence: US)
  Receive Date: 20241212
  Receipt Date: 20241230
  Transmission Date: 20250115
  Serious: Yes (Other)
  Sender: ABBVIE
  Company Number: US-ABBVIE-6040285

PATIENT
  Age: 59 Year
  Sex: Male
  Weight: 102 kg

DRUGS (4)
  1. SKYRIZI [Suspect]
     Active Substance: RISANKIZUMAB-RZAA
     Indication: Psoriasis
     Route: 058
     Dates: start: 2023
  2. SKYRIZI [Suspect]
     Active Substance: RISANKIZUMAB-RZAA
     Route: 058
  3. ROSUVASTATIN [Concomitant]
     Active Substance: ROSUVASTATIN
     Indication: Blood cholesterol
  4. LISINOPRIL [Concomitant]
     Active Substance: LISINOPRIL
     Indication: Blood pressure management

REACTIONS (8)
  - Loss of consciousness [Recovered/Resolved]
  - Eye contusion [Recovered/Resolved]
  - Injection site pain [Recovered/Resolved]
  - Rhinalgia [Recovering/Resolving]
  - Malaise [Unknown]
  - Face injury [Unknown]
  - Carpal tunnel syndrome [Unknown]
  - Injection site bruising [Recovered/Resolved]

NARRATIVE: CASE EVENT DATE: 20240101
